FAERS Safety Report 17575707 (Version 1)
Quarter: 2020Q1

REPORT INFORMATION
  Report Type: Spontaneous
  Country: US (occurrence: US)
  Receive Date: 20200324
  Receipt Date: 20200324
  Transmission Date: 20200409
  Serious: No
  Sender: FDA-Public Use
  Company Number: US-MYLANLABS-2020M1028383

PATIENT
  Sex: Male
  Weight: 86 kg

DRUGS (1)
  1. SCOPOLAMINE TRANSDERMAL SYSTEM [Suspect]
     Active Substance: SCOPOLAMINE
     Indication: MOTION SICKNESS
     Dosage: 1 MILLIGRAM (1MG/3 DAYS)
     Route: 062

REACTIONS (3)
  - Dizziness [Recovering/Resolving]
  - Therapeutic product effect incomplete [Recovering/Resolving]
  - Product adhesion issue [Unknown]
